FAERS Safety Report 6257445-7 (Version None)
Quarter: 2009Q3

REPORT INFORMATION
  Report Type: 
  Country: None (occurrence: None)
  Receive Date: 20090706
  Receipt Date: 20090626
  Transmission Date: 20100115
  Serious: Yes (Other)
  Sender: FDA-Public Use
  Company Number: CA-ABBOTT-09P-028-0583203-00

PATIENT
  Sex: Male
  Weight: 92.162 kg

DRUGS (13)
  1. LUPRON DEPOT [Suspect]
     Indication: PROSTATE CANCER
     Dates: start: 20070620
  2. ENTROPHEN [Concomitant]
     Indication: DRUG USE FOR UNKNOWN INDICATION
     Route: 048
     Dates: start: 19970101
  3. FERROUS GLUCONATE [Concomitant]
     Indication: DRUG USE FOR UNKNOWN INDICATION
     Route: 048
  4. SOFLAX [Concomitant]
     Indication: DRUG USE FOR UNKNOWN INDICATION
     Dosage: 100 MG 2 TABS QID
     Route: 048
  5. LACTULOSE [Concomitant]
     Indication: DRUG USE FOR UNKNOWN INDICATION
     Dosage: 1 TBSP QD
     Route: 048
  6. SEREVENT [Concomitant]
     Indication: DRUG USE FOR UNKNOWN INDICATION
     Route: 055
  7. ALBUTEROL [Concomitant]
     Indication: DRUG USE FOR UNKNOWN INDICATION
     Route: 055
  8. BICALUTAMIDE [Concomitant]
     Indication: DRUG USE FOR UNKNOWN INDICATION
     Route: 048
  9. VOLTAREN [Concomitant]
     Indication: ANTIINFLAMMATORY THERAPY
     Route: 048
  10. OXAZOSIN [Concomitant]
     Indication: BENIGN PROSTATIC HYPERPLASIA
     Dosage: 4 MG 2 TABS QD
     Route: 048
  11. HYDROMORPHONE [Concomitant]
     Indication: CHEST PAIN
     Route: 048
  12. CLONAZEPAM [Concomitant]
     Indication: INSOMNIA
     Dosage: 5 MG 2 TABS QHS
     Dates: start: 20020101
  13. MEGESTROL ACETATE [Concomitant]
     Indication: HOT FLUSH
     Dosage: 40 MG 1/2 TAB BID
     Route: 048
     Dates: start: 20070701

REACTIONS (1)
  - PROSTATIC SPECIFIC ANTIGEN INCREASED [None]
